FAERS Safety Report 4995585-0 (Version None)
Quarter: 2006Q2

REPORT INFORMATION
  Report Type: 
  Country: None (occurrence: None)
  Receive Date: 20060508
  Receipt Date: 20060425
  Transmission Date: 20061013
  Serious: Yes (Other)
  Sender: FDA-Public Use
  Company Number: BE-ROCHE-446003

PATIENT
  Age: 15 Year
  Sex: Male

DRUGS (2)
  1. ROACCUTANE [Suspect]
     Route: 048
     Dates: start: 20050615, end: 20060215
  2. ROACCUTANE [Suspect]
     Route: 048
     Dates: start: 20060215, end: 20060420

REACTIONS (4)
  - ANOREXIA [None]
  - APATHY [None]
  - INSOMNIA [None]
  - NAUSEA [None]
